FAERS Safety Report 23083499 (Version 1)
Quarter: 2023Q4

REPORT INFORMATION
  Report Type: Spontaneous
  Country: GB (occurrence: GB)
  Receive Date: 20231019
  Receipt Date: 20231019
  Transmission Date: 20240110
  Serious: Yes (Hospitalization, Other)
  Sender: FDA-Public Use
  Company Number: None

PATIENT
  Age: 35 Year
  Sex: Female
  Weight: 91 kg

DRUGS (1)
  1. NAPROXEN [Suspect]
     Active Substance: NAPROXEN
     Indication: Product used for unknown indication
     Dosage: 500 MILLIGRAM, BID (TWICE A DAY WHEN REQUIRED)
     Route: 065
     Dates: start: 20211001, end: 20231006

REACTIONS (1)
  - Diverticulitis intestinal perforated [Recovering/Resolving]

NARRATIVE: CASE EVENT DATE: 20231006
